FAERS Safety Report 6877086-8 (Version None)
Quarter: 2010Q3

REPORT INFORMATION
  Report Type: 
  Country: None (occurrence: None)
  Receive Date: 20100727
  Receipt Date: 20100727
  Transmission Date: 20110219
  Serious: Yes (Other)
  Sender: FDA-Public Use
  Company Number: None

PATIENT
  Sex: Female
  Weight: 92.6 kg

DRUGS (2)
  1. CYMBALTA [Suspect]
     Indication: GENERALISED ANXIETY DISORDER
     Dosage: 90 MG DAILY PO
     Route: 048
  2. ZYVOX [Suspect]
     Indication: SEPSIS
     Dosage: 600 MG EVERY 12 HOURS IV
     Route: 042
     Dates: start: 20090416, end: 20090428

REACTIONS (4)
  - CELLULITIS [None]
  - DYSKINESIA [None]
  - MYOCLONUS [None]
  - RENAL FAILURE ACUTE [None]
